FAERS Safety Report 4303738-X (Version None)
Quarter: 2004Q1

REPORT INFORMATION
  Report Type: 
  Country: None (occurrence: None)
  Receive Date: 20040223
  Receipt Date: 20040203
  Transmission Date: 20041129
  Serious: Yes (Other)
  Sender: FDA-Public Use
  Company Number: B0322034A

PATIENT
  Age: 33 Year
  Sex: Male

DRUGS (4)
  1. THIOGUANINE [Suspect]
     Dates: start: 20011001
  2. MESALAZINE [Concomitant]
  3. TACROLIMUS [Concomitant]
  4. MERCAPTOPURINE [Concomitant]

REACTIONS (1)
  - NODULAR REGENERATIVE HYPERPLASIA [None]
